FAERS Safety Report 4536549-0 (Version None)
Quarter: 2004Q4

REPORT INFORMATION
  Report Type: 
  Country: None (occurrence: None)
  Receive Date: 20041220
  Receipt Date: 20041207
  Transmission Date: 20050328
  Serious: Yes (Other)
  Sender: FDA-Public Use
  Company Number: 2004104632

PATIENT
  Age: 50 Year
  Sex: Male
  Weight: 120 kg

DRUGS (5)
  1. CELEBREX [Suspect]
     Indication: INTERVERTEBRAL DISC PROTRUSION
     Dosage: SEE IMAGE
     Route: 048
     Dates: start: 20041117, end: 20041117
  2. CELEBREX [Suspect]
     Indication: MYALGIA
     Dosage: SEE IMAGE
     Route: 048
     Dates: start: 20041117, end: 20041117
  3. CELEBREX [Suspect]
     Indication: INTERVERTEBRAL DISC PROTRUSION
     Dosage: SEE IMAGE
     Route: 048
     Dates: end: 20041117
  4. CELEBREX [Suspect]
     Indication: MYALGIA
     Dosage: SEE IMAGE
     Route: 048
     Dates: end: 20041117
  5. RAMIPRIL [Concomitant]

REACTIONS (8)
  - ERYTHEMA [None]
  - LARYNGOSPASM [None]
  - LOCALISED OEDEMA [None]
  - MUSCLE TIGHTNESS [None]
  - RASH GENERALISED [None]
  - RASH PRURITIC [None]
  - SELF-MEDICATION [None]
  - URTICARIA [None]
